FAERS Safety Report 6749834-9 (Version None)
Quarter: 2010Q2

REPORT INFORMATION
  Report Type: 
  Country: None (occurrence: None)
  Receive Date: 20100601
  Receipt Date: 20100526
  Transmission Date: 20101027
  Serious: Yes (Other)
  Sender: FDA-Public Use
  Company Number: US-ROXANE LABORATORIES, INC.-2010-DE-02907GD

PATIENT
  Sex: Male

DRUGS (20)
  1. MORPHINE SULFATE [Suspect]
     Indication: PAIN
     Dosage: 60 MG EVERY 2 HOURS AS NEEDED
     Route: 048
  2. METHADONE [Suspect]
     Indication: PAIN
     Dosage: 360 MG
     Route: 048
  3. OXYCODONE [Suspect]
     Indication: PAIN
     Dosage: 240 MG
     Route: 048
  4. FENTANYL [Suspect]
     Indication: PAIN
     Dosage: 4.8 MG
     Route: 062
  5. OXYGEN [Concomitant]
     Indication: CYSTIC FIBROSIS LUNG
     Dosage: 2 L/MIN
     Route: 055
  6. PULMOZYME [Concomitant]
     Indication: CYSTIC FIBROSIS LUNG
     Dosage: 5 MG
     Route: 055
  7. IPRATROPIUM BROMIDE [Concomitant]
     Indication: CYSTIC FIBROSIS LUNG
     Dosage: 8 PUFFS
     Route: 055
  8. ALBUTEROL SULFATE [Concomitant]
     Indication: CYSTIC FIBROSIS LUNG
     Dosage: 8 PUFFS
     Route: 055
  9. DIAZEPAM [Concomitant]
     Indication: PAIN
     Dosage: 40 MG
     Route: 048
  10. VITAMINS A, D, E, K [Concomitant]
     Dosage: 1 TABLET
     Route: 048
  11. PANCREASE MT20 [Concomitant]
     Dosage: 4 CAPSULES WITH EACH MEAL
     Route: 048
  12. TAMSULOSIN HYDROCHLORIDE [Concomitant]
     Dosage: 0.8 MG
     Route: 048
  13. FINASTERIDE [Concomitant]
     Dosage: 5 MG
     Route: 048
  14. METOCLOPRAMIDE [Concomitant]
     Dosage: 10 MG
     Route: 048
  15. PANTOPRAZOLE [Concomitant]
     Dosage: 40 MG
     Route: 048
  16. VENLAFAXINE [Concomitant]
     Dosage: 300 MG
     Route: 048
  17. AZITHROMYCIN [Concomitant]
     Dosage: 250 MG
     Route: 048
  18. PSYLLIUM SEEDS [Concomitant]
     Dosage: 6 G
     Route: 048
  19. ANTIBIOTICS [Concomitant]
     Indication: PSEUDOMONAS INFECTION
  20. ANTIBIOTICS [Concomitant]
     Indication: STAPHYLOCOCCAL INFECTION

REACTIONS (2)
  - DRUG DEPENDENCE [None]
  - PAIN [None]
